FAERS Safety Report 12289356 (Version 1)
Quarter: 2016Q2

REPORT INFORMATION
  Report Type: Spontaneous
  Country: US (occurrence: None)
  Receive Date: 20160420
  Receipt Date: 20160420
  Transmission Date: 20160815
  Serious: Yes (Other)
  Sender: FDA-Public Use
  Company Number: None

PATIENT
  Age: 57 Year
  Sex: Female
  Weight: 62.6 kg

DRUGS (7)
  1. MAGNESIUM CITRATE. [Concomitant]
     Active Substance: MAGNESIUM CITRATE
  2. DICLOFENAC SOD EC 50 MG, 50 MG PACK PHARMACEU [Suspect]
     Active Substance: DICLOFENAC SODIUM
     Indication: ARTHRALGIA
     Dosage: 14 TABLET(S) TWICE A DAY TAKEN BY MOUTH
     Route: 048
     Dates: start: 20160325, end: 20160403
  3. MULTIVITAMIN [Concomitant]
     Active Substance: VITAMINS
  4. PREDNISONE. [Concomitant]
     Active Substance: PREDNISONE
  5. IRON [Concomitant]
     Active Substance: IRON
  6. IBUPROFEN. [Concomitant]
     Active Substance: IBUPROFEN
  7. DIPHENHYDRAMINE HCL [Concomitant]
     Active Substance: DIPHENHYDRAMINE HYDROCHLORIDE

REACTIONS (1)
  - Gastrooesophageal reflux disease [None]

NARRATIVE: CASE EVENT DATE: 20160326
